FAERS Safety Report 9704619 (Version 3)
Quarter: 2013Q4

REPORT INFORMATION
  Report Type: Report from Study
  Country: JP (occurrence: JP)
  Receive Date: 20131122
  Receipt Date: 20131213
  Transmission Date: 20140711
  Serious: Yes (Hospitalization, Disabling)
  Sender: FDA-Public Use
  Company Number: JP-B.I. PHARMACEUTICALS,INC./RIDGEFIELD-2013-BI-37799NB

PATIENT
  Age: 74 Year
  Sex: Female
  Weight: 43 kg

DRUGS (6)
  1. PRAZAXA [Suspect]
     Indication: CEREBROVASCULAR ACCIDENT PROPHYLAXIS
     Dosage: 220 MG
     Route: 048
     Dates: start: 20130719
  2. CRESTOR [Concomitant]
     Dosage: 2.5 MG
     Route: 048
  3. EPADEL [Concomitant]
     Dosage: 1800 MG
     Route: 048
     Dates: start: 20130716
  4. LENDORMIN [Concomitant]
     Dosage: 0.25 MG
     Route: 048
  5. PLAVIX [Concomitant]
     Indication: PROPHYLAXIS
     Dosage: 50 MG
     Route: 048
     Dates: start: 20130716
  6. MICARDIS [Concomitant]
     Dosage: 40 MG
     Route: 048

REACTIONS (2)
  - Cerebral infarction [Recovered/Resolved with Sequelae]
  - Drug ineffective [Unknown]
